FAERS Safety Report 7019700-2 (Version None)
Quarter: 2010Q3

REPORT INFORMATION
  Report Type: 
  Country: None (occurrence: None)
  Receive Date: 20100909
  Receipt Date: 20100524
  Transmission Date: 20110219
  Serious: No
  Sender: FDA-Public Use
  Company Number: 2010SP028834

PATIENT
  Age: 25 Year
  Sex: Female

DRUGS (4)
  1. SAPHRIS [Suspect]
     Indication: BIPOLAR DISORDER
     Dosage: 5 MG ; QPM ; SL
     Route: 060
     Dates: start: 20100413, end: 20100415
  2. ABILIFY [Concomitant]
  3. COGENTIN [Concomitant]
  4. ADDERALL 10 [Concomitant]

REACTIONS (3)
  - INAPPROPRIATE SCHEDULE OF DRUG ADMINISTRATION [None]
  - MEMORY IMPAIRMENT [None]
  - UNDERDOSE [None]
